FAERS Safety Report 22531801 (Version 1)
Quarter: 2023Q2

REPORT INFORMATION
  Report Type: Spontaneous
  Country: US (occurrence: US)
  Receive Date: 20230607
  Receipt Date: 20230607
  Transmission Date: 20230721
  Serious: No
  Sender: FDA-Public Use
  Company Number: US-TEVA-2023-US-2891390

PATIENT
  Age: 84 Year
  Sex: Female
  Weight: 77.9 kg

DRUGS (1)
  1. ANASTROZOLE [Suspect]
     Active Substance: ANASTROZOLE
     Indication: Breast cancer
     Dosage: 1 MILLIGRAM DAILY; FOR 5 YEARS
     Route: 065
     Dates: start: 20190201

REACTIONS (1)
  - Somnolence [Unknown]
